FAERS Safety Report 12996516 (Version 1)
Quarter: 2016Q4

REPORT INFORMATION
  Report Type: Spontaneous
  Country: US (occurrence: US)
  Receive Date: 20161204
  Receipt Date: 20161204
  Transmission Date: 20170207
  Serious: No
  Sender: FDA-Public Use
  Company Number: US-BIOGEN-2016BI00324631

PATIENT
  Age: 50 Year
  Sex: Female
  Weight: 69.46 kg

DRUGS (1)
  1. AVONEX [Suspect]
     Active Substance: INTERFERON BETA-1A
     Indication: MULTIPLE SCLEROSIS
     Route: 030
     Dates: start: 2006

REACTIONS (6)
  - Treatment failure [Unknown]
  - Needle fatigue [Unknown]
  - Fall [Unknown]
  - Balance disorder [Unknown]
  - Multiple sclerosis relapse [Unknown]
  - Blood urine present [Unknown]

NARRATIVE: CASE EVENT DATE: 20131020
